FAERS Safety Report 13564282 (Version 1)
Quarter: 2017Q2

REPORT INFORMATION
  Report Type: Spontaneous
  Country: US (occurrence: US)
  Receive Date: 20170519
  Receipt Date: 20170519
  Transmission Date: 20170830
  Serious: No
  Sender: FDA-Public Use
  Company Number: US-PFIZER INC-2017215437

PATIENT
  Age: 76 Year
  Sex: Male
  Weight: 132 kg

DRUGS (18)
  1. ASPIRIN. [Concomitant]
     Active Substance: ASPIRIN
     Indication: BLOOD DISORDER
     Dosage: 81 MG, ONCE A DAY
  2. LUTEIN [Concomitant]
     Active Substance: LUTEIN
     Indication: CATARACT
     Dosage: 2 MG
  3. LOSARTAN POTASSIUM. [Concomitant]
     Active Substance: LOSARTAN POTASSIUM
     Dosage: 50 MG
  4. DOFETILIDE. [Suspect]
     Active Substance: DOFETILIDE
     Indication: ATRIAL FIBRILLATION
     Dosage: 500 MCG, CAPSULE, ORALLY, TWICE A DAY
     Route: 048
     Dates: start: 20170427
  5. CARDIZEM LA [Concomitant]
     Active Substance: DILTIAZEM HYDROCHLORIDE
     Indication: HEART RATE ABNORMAL
     Dosage: 120 MG, TWICE A DAY
  6. ELIQUIS [Concomitant]
     Active Substance: APIXABAN
     Dosage: 5 MG
  7. VITAMIN D [Concomitant]
     Active Substance: CHOLECALCIFEROL
  8. LANTUS [Concomitant]
     Active Substance: INSULIN GLARGINE
     Dosage: INSULIN
  9. MICRO-K 10 [Concomitant]
     Active Substance: POTASSIUM CHLORIDE
     Dosage: ORAL, CAPSULE, ONCE A DAY
     Route: 048
  10. OMEPRAZOLE. [Concomitant]
     Active Substance: OMEPRAZOLE
     Indication: DYSPEPSIA
     Dosage: 20 MG,
  11. TRULICITY [Concomitant]
     Active Substance: DULAGLUTIDE
     Dosage: 0.75, ONCE A WEEK
  12. COZAAR [Concomitant]
     Active Substance: LOSARTAN POTASSIUM
     Dosage: 50 MG
  13. CRESTOR [Concomitant]
     Active Substance: ROSUVASTATIN CALCIUM
     Dosage: 10 MG
  14. CYMBALTA [Concomitant]
     Active Substance: DULOXETINE HYDROCHLORIDE
     Dosage: 20 MG
  15. HUMALOG [Concomitant]
     Active Substance: INSULIN LISPRO
     Dosage: INSULIN
  16. METOPROLOL SUCCINATE ER [Concomitant]
     Active Substance: METOPROLOL SUCCINATE
     Dosage: 50 MG, 2 TABLETS
  17. MYRBETRIQ [Concomitant]
     Active Substance: MIRABEGRON
     Dosage: 50 MG, TABLET
  18. VITAMIN E [Concomitant]
     Active Substance: .ALPHA.-TOCOPHEROL
     Dosage: 400 IU

REACTIONS (5)
  - Dizziness [Recovering/Resolving]
  - Chills [Recovered/Resolved]
  - Tremor [Recovered/Resolved]
  - Discomfort [Recovering/Resolving]
  - Fatigue [Unknown]

NARRATIVE: CASE EVENT DATE: 20170513
